FAERS Safety Report 7781194-7 (Version None)
Quarter: 2011Q3

REPORT INFORMATION
  Report Type: 
  Country: None (occurrence: None)
  Receive Date: 20110927
  Receipt Date: 20110914
  Transmission Date: 20111222
  Serious: Yes (Hospitalization, Other)
  Sender: FDA-Public Use
  Company Number: PHHY2011BR50769

PATIENT
  Sex: Female

DRUGS (1)
  1. EXFORGE [Suspect]
     Indication: HYPERTENSION
     Dosage: 320 MG VALS AND 5 MG AMLO, DAILY
     Route: 048
     Dates: start: 20070101

REACTIONS (6)
  - BLOOD PRESSURE INCREASED [None]
  - NAUSEA [None]
  - INFARCTION [None]
  - DIZZINESS [None]
  - MICTURITION URGENCY [None]
  - WRONG TECHNIQUE IN DRUG USAGE PROCESS [None]
